FAERS Safety Report 9471558 (Version 1)
Quarter: 2013Q3

REPORT INFORMATION
  Report Type: Spontaneous
  Country: US (occurrence: US)
  Receive Date: 20130822
  Receipt Date: 20130822
  Transmission Date: 20140515
  Serious: Yes (Other)
  Sender: FDA-Public Use
  Company Number: PHHY2013US088399

PATIENT
  Age: 23 Year
  Sex: Male

DRUGS (9)
  1. FENTANYL [Suspect]
     Indication: GENERAL ANAESTHESIA
     Dosage: 250 UG, UNK
  2. REMIFENTANIL [Interacting]
     Indication: GENERAL ANAESTHESIA
     Dosage: 0.2 UG/KG/MIN, UNK
  3. REMIFENTANIL [Interacting]
     Dosage: 100 UG, UNK
     Route: 040
  4. FLUOXETINE [Interacting]
     Dosage: 60 MG/DAY, UNK
  5. DIAZEPAM [Concomitant]
  6. MIDAZOLAM [Concomitant]
  7. BUPIVACAINE [Concomitant]
  8. PROPOFOL [Concomitant]
  9. EPINEPHRINE HYDROCHLORIDE [Concomitant]

REACTIONS (5)
  - Serotonin syndrome [Unknown]
  - Clonus [Recovered/Resolved]
  - Nystagmus [Recovered/Resolved]
  - Hyperhidrosis [Recovered/Resolved]
  - Drug interaction [Recovered/Resolved]
